FAERS Safety Report 7384263-9 (Version None)
Quarter: 2011Q1

REPORT INFORMATION
  Report Type: 
  Country: None (occurrence: None)
  Receive Date: 20110330
  Receipt Date: 20110324
  Transmission Date: 20110831
  Serious: Yes (Other)
  Sender: FDA-Public Use
  Company Number: IT-GENZYME-FLUD-1000907

PATIENT

DRUGS (4)
  1. FLUDARA [Suspect]
     Indication: NON-HODGKIN'S LYMPHOMA
     Dosage: 25 MG/M2, FOR 3 DAYS, EVERY 28 DAYS
     Route: 042
  2. CYCLOPHOSPHAMIDE [Suspect]
     Indication: NON-HODGKIN'S LYMPHOMA
     Dosage: 250 MG/M2, FOR 3 DAYS, EVERY 28 DAYS
     Route: 042
  3. TRIMETHOPRIM + SULFAMETHOXAZOLE [Concomitant]
     Indication: ANTIFUNGAL PROPHYLAXIS
     Dosage: BID TWICE WEEKLY
     Route: 048
  4. FLUCONAZOLE [Concomitant]
     Indication: ANTIFUNGAL PROPHYLAXIS
     Dosage: 200 MG, QD

REACTIONS (6)
  - PANCYTOPENIA [None]
  - NEUTROPENIA [None]
  - HAEMOLYTIC ANAEMIA [None]
  - RENAL FAILURE [None]
  - ANAEMIA [None]
  - SKIN INFECTION [None]
